FAERS Safety Report 21088933 (Version 1)
Quarter: 2022Q3

REPORT INFORMATION
  Report Type: Spontaneous
  Country: GB (occurrence: GB)
  Receive Date: 20220715
  Receipt Date: 20220715
  Transmission Date: 20221027
  Serious: Yes (Other)
  Sender: FDA-Public Use
  Company Number: GB-CAREFORSONS-GB2022SONSSPN089

PATIENT
  Sex: Male

DRUGS (1)
  1. MINOXIDIL [Suspect]
     Active Substance: MINOXIDIL
     Dosage: UNK
     Route: 050

REACTIONS (1)
  - Erectile dysfunction [Unknown]
